FAERS Safety Report 20906896 (Version 2)
Quarter: 2022Q2

REPORT INFORMATION
  Report Type: Spontaneous
  Country: US (occurrence: US)
  Receive Date: 20220602
  Receipt Date: 20220617
  Transmission Date: 20220720
  Serious: No
  Sender: FDA-Public Use
  Company Number: US-BRISTOL-MYERS SQUIBB COMPANY-2022-046819

PATIENT
  Age: 78 Year
  Sex: Female

DRUGS (3)
  1. POMALYST [Suspect]
     Active Substance: POMALIDOMIDE
     Indication: Plasma cell myeloma
     Route: 048
     Dates: start: 202202
  2. POMALYST [Suspect]
     Active Substance: POMALIDOMIDE
     Route: 048
     Dates: start: 20220125
  3. POMALYST [Suspect]
     Active Substance: POMALIDOMIDE
     Dosage: FREQ: DAILY
     Route: 048
     Dates: start: 20220615

REACTIONS (7)
  - Light chain analysis increased [Unknown]
  - Fatigue [Unknown]
  - Hypersomnia [Unknown]
  - Dizziness [Unknown]
  - Feeling abnormal [Unknown]
  - Pruritus [Unknown]
  - Sneezing [Unknown]

NARRATIVE: CASE EVENT DATE: 20220524
